FAERS Safety Report 5652113-4 (Version None)
Quarter: 2008Q1

REPORT INFORMATION
  Report Type: 
  Country: None (occurrence: None)
  Receive Date: 20080304
  Receipt Date: 20080219
  Transmission Date: 20080703
  Serious: Yes (Other)
  Sender: FDA-Public Use
  Company Number: 2008000370

PATIENT
  Sex: Female

DRUGS (2)
  1. TARCEVA [Suspect]
  2. CORTISON (CORTISONE) [Suspect]

REACTIONS (3)
  - EPIDERMAL GROWTH FACTOR RECEPTOR INCREASED [None]
  - EPISTAXIS [None]
  - THROMBOCYTOPENIA [None]
